FAERS Safety Report 9306517 (Version 1)
Quarter: 2013Q2

REPORT INFORMATION
  Report Type: Spontaneous
  Country: US (occurrence: US)
  Receive Date: 20130523
  Receipt Date: 20130523
  Transmission Date: 20140414
  Serious: Yes (Hospitalization, Other)
  Sender: FDA-Public Use
  Company Number: US-ASTRAZENECA-2013SE33843

PATIENT
  Age: 79 Year
  Sex: Male
  Weight: 87.1 kg

DRUGS (13)
  1. TOPROL XL [Suspect]
     Indication: STENT PLACEMENT
     Route: 048
     Dates: start: 20100512
  2. TOPROL XL [Suspect]
     Indication: STENT PLACEMENT
     Route: 048
     Dates: start: 20121016
  3. TOPROL XL [Suspect]
     Indication: STENT PLACEMENT
     Route: 048
     Dates: start: 20121105
  4. TOPROL XL [Suspect]
     Indication: STENT PLACEMENT
     Dosage: CUTTING IN HALF AND TAKING ONE HALF WITH BREAKFAST AND  ONE HALF AFTER DINNER
     Route: 048
  5. PLAVIX [Suspect]
     Indication: STENT PLACEMENT
     Route: 065
     Dates: start: 20100512
  6. XARELTO [Suspect]
     Indication: ATRIAL FIBRILLATION
     Route: 048
     Dates: start: 20130219, end: 20130317
  7. XARELTO [Suspect]
     Indication: ATRIAL FIBRILLATION
     Route: 048
     Dates: start: 20130318
  8. DIGOXIN [Suspect]
     Indication: ATRIAL FIBRILLATION
     Route: 048
     Dates: start: 20130219
  9. BABY ASPIRIN [Concomitant]
  10. LIPITOR [Concomitant]
     Indication: STENT PLACEMENT
     Dates: start: 20100512
  11. VITAMIN E [Concomitant]
  12. SHAKLEE MULTIVITAMINS [Concomitant]
  13. OMEGA 3 [Concomitant]

REACTIONS (13)
  - Fall [Unknown]
  - Atrial fibrillation [Unknown]
  - Hypertension [Unknown]
  - Chest pain [Unknown]
  - Headache [Unknown]
  - Dizziness [Recovering/Resolving]
  - Angina pectoris [Unknown]
  - Haemorrhage [Unknown]
  - Dizziness [Unknown]
  - Mouth haemorrhage [Unknown]
  - Hypotension [Unknown]
  - Heart rate irregular [Unknown]
  - Intentional drug misuse [Unknown]
